FAERS Safety Report 17371523 (Version 1)
Quarter: 2020Q1

REPORT INFORMATION
  Report Type: Spontaneous
  Country: US (occurrence: US)
  Receive Date: 20200205
  Receipt Date: 20200205
  Transmission Date: 20200409
  Serious: No
  Sender: FDA-Public Use
  Company Number: US-JNJFOC-20200125851

PATIENT
  Sex: Male
  Weight: 104.42 kg

DRUGS (1)
  1. WOMENS ROGAINE UNSCENTED [Suspect]
     Active Substance: MINOXIDIL
     Indication: ALOPECIA
     Dosage: DON^T KNOW THE AMOUNT
     Route: 061

REACTIONS (3)
  - Product use issue [Unknown]
  - Intentional product misuse [Unknown]
  - Hypersensitivity [Recovered/Resolved]
